FAERS Safety Report 19119682 (Version 6)
Quarter: 2021Q3

REPORT INFORMATION
  Report Type: Other
  Country: CA (occurrence: CA)
  Receive Date: 20210412
  Receipt Date: 20210921
  Transmission Date: 20211014
  Serious: Yes (Life-Threatening, Hospitalization, Disabling, Other)
  Sender: FDA-Public Use
  Company Number: CA-APOTEX-2021AP008456

PATIENT
  Age: 43 Year
  Sex: Female
  Weight: 70 kg

DRUGS (195)
  1. LEFLUNOMIDE. [Suspect]
     Active Substance: LEFLUNOMIDE
     Indication: RHEUMATOID ARTHRITIS
     Dosage: UNK
     Route: 048
  2. HYDROXYCHLOROQUINE [Suspect]
     Active Substance: HYDROXYCHLOROQUINE
     Indication: PRODUCT USED FOR UNKNOWN INDICATION
     Dosage: 400 MILLIGRAM, QD
     Route: 048
  3. FOLIC ACID. [Suspect]
     Active Substance: FOLIC ACID
     Indication: RHEUMATOID ARTHRITIS
     Dosage: 25 MILLIGRAM
     Route: 048
  4. CETIRIZINE HYDROCHLORIDE;PSEUDOEPHEDRINE HYDROCHLORIDE [Suspect]
     Active Substance: CETIRIZINE HYDROCHLORIDE\PSEUDOEPHEDRINE HYDROCHLORIDE
     Indication: RHEUMATOID ARTHRITIS
     Dosage: 10 MILLIGRAM, QD
     Route: 048
  5. CIMZIA [Suspect]
     Active Substance: CERTOLIZUMAB PEGOL
     Indication: PSORIASIS
     Dosage: UNK
     Route: 058
  6. CORTISONE ACETATE. [Suspect]
     Active Substance: CORTISONE ACETATE
     Dosage: 25 UNK
     Route: 065
  7. RITUXIMAB. [Suspect]
     Active Substance: RITUXIMAB
     Indication: PRODUCT USED FOR UNKNOWN INDICATION
     Dosage: UNK (365 AT DURATION OF UNSPECIFIED UNIT)
     Route: 042
  8. STELARA [Suspect]
     Active Substance: USTEKINUMAB
     Dosage: UNK
     Route: 058
  9. SULFASALAZINE. [Suspect]
     Active Substance: SULFASALAZINE
     Dosage: 1 GRAM, BID
     Route: 048
  10. WINPRED [Suspect]
     Active Substance: PREDNISONE
     Indication: RHEUMATOID ARTHRITIS
     Dosage: UNK
     Route: 048
  11. CETIRIZINE HYDROCHLORIDE;PHENYLEPHRINE HYDROCHLORIDE [Suspect]
     Active Substance: CETIRIZINE HYDROCHLORIDE\PHENYLEPHRINE HYDROCHLORIDE
     Indication: OFF LABEL USE
     Dosage: 25 UNK
     Route: 065
  12. TOFACITINIB CITRATE [Suspect]
     Active Substance: TOFACITINIB CITRATE
     Indication: RHEUMATOID ARTHRITIS
     Dosage: 5 MILLIGRAM, QD
     Route: 065
  13. DESOXIMETASONE. [Suspect]
     Active Substance: DESOXIMETASONE
     Indication: RHEUMATOID ARTHRITIS
     Dosage: 25 MILLIGRAM
     Route: 048
  14. DESOXIMETASONE. [Suspect]
     Active Substance: DESOXIMETASONE
     Dosage: UNK
     Route: 065
  15. DICLOFENAC DIETHYLAMINE [Suspect]
     Active Substance: DICLOFENAC DIETHYLAMINE
     Indication: PRODUCT USED FOR UNKNOWN INDICATION
     Dosage: UNK
     Route: 065
  16. GOLIMUMAB [Suspect]
     Active Substance: GOLIMUMAB
     Indication: RHEUMATOID ARTHRITIS
     Dosage: UNK
     Route: 065
  17. ALENDRONATE SODIUM. [Suspect]
     Active Substance: ALENDRONATE SODIUM
     Indication: RHEUMATOID ARTHRITIS
     Dosage: UNK
     Route: 048
  18. CELEBREX [Suspect]
     Active Substance: CELECOXIB
     Indication: PRODUCT USED FOR UNKNOWN INDICATION
     Dosage: 2 DOSAGE FORM, QD
     Route: 048
  19. CETIRIZINE HYDROCHLORIDE. [Concomitant]
     Active Substance: CETIRIZINE HYDROCHLORIDE
     Indication: PRODUCT USED FOR UNKNOWN INDICATION
     Dosage: UNK
     Route: 065
  20. QUETIAPINE. [Concomitant]
     Active Substance: QUETIAPINE
     Indication: PRODUCT USED FOR UNKNOWN INDICATION
     Dosage: UNK
     Route: 065
  21. APO?PREDNISONE [Suspect]
     Active Substance: PREDNISONE
     Dosage: UNK
     Route: 048
  22. METHOTREXATE. [Suspect]
     Active Substance: METHOTREXATE
     Dosage: 25 MILLIGRAM
     Route: 048
  23. METHOTREXATE. [Suspect]
     Active Substance: METHOTREXATE
     Dosage: 1 DOSAGE FORM, QD
     Route: 048
  24. METHOTREXATE. [Suspect]
     Active Substance: METHOTREXATE
     Dosage: 1 DOSAGE FORM
     Route: 013
  25. PREDNISONE. [Suspect]
     Active Substance: PREDNISONE
     Indication: PRODUCT USED FOR UNKNOWN INDICATION
     Dosage: 5 MILLIGRAM
     Route: 048
  26. CETIRIZINE [Suspect]
     Active Substance: CETIRIZINE HYDROCHLORIDE
     Indication: RHEUMATOID ARTHRITIS
     Dosage: 10 MILLIGRAM, QD
     Route: 065
  27. FOLIC ACID. [Suspect]
     Active Substance: FOLIC ACID
     Dosage: 3 MILLIGRAM
     Route: 065
  28. NAPROXEN SODIUM. [Suspect]
     Active Substance: NAPROXEN SODIUM
     Dosage: UNK UNK, QD
     Route: 065
  29. ACTEMRA [Suspect]
     Active Substance: TOCILIZUMAB
     Dosage: 162 MILLIGRAM
     Route: 058
  30. ARAVA [Suspect]
     Active Substance: LEFLUNOMIDE
     Indication: PRODUCT USED FOR UNKNOWN INDICATION
     Dosage: UNK
     Route: 065
  31. ARAVA [Suspect]
     Active Substance: LEFLUNOMIDE
     Dosage: UNK
     Route: 048
  32. CORTISONE ACETATE. [Suspect]
     Active Substance: CORTISONE ACETATE
     Indication: RHEUMATOID ARTHRITIS
     Dosage: 25 MILLIGRAM
     Route: 048
  33. DESOXYMETHASONE [Suspect]
     Active Substance: DESOXIMETASONE
     Dosage: UNK
     Route: 058
  34. ENBREL [Suspect]
     Active Substance: ETANERCEPT
     Indication: RHEUMATOID ARTHRITIS
     Dosage: 50 MILLIGRAM, Q.WK.
     Route: 058
  35. METHOTREXATE. [Suspect]
     Active Substance: METHOTREXATE
     Indication: RHEUMATOID ARTHRITIS
     Dosage: 25 MILLIGRAM, Q.WK.
     Route: 058
  36. ORENCIA [Suspect]
     Active Substance: ABATACEPT
     Indication: PRODUCT USED FOR UNKNOWN INDICATION
     Dosage: UNK
     Route: 041
  37. OTEZLA [Suspect]
     Active Substance: APREMILAST
     Indication: PRODUCT USED FOR UNKNOWN INDICATION
     Dosage: 3 MILLIGRAM, BID
     Route: 048
  38. REMICADE [Suspect]
     Active Substance: INFLIXIMAB
     Dosage: UNK
     Route: 042
  39. RITUXIMAB. [Suspect]
     Active Substance: RITUXIMAB
     Indication: RHEUMATOID ARTHRITIS
     Dosage: UNK
     Route: 058
  40. SULFASALAZINE. [Suspect]
     Active Substance: SULFASALAZINE
     Dosage: 1 GRAM
     Route: 065
  41. SULFASALAZINE. [Suspect]
     Active Substance: SULFASALAZINE
     Dosage: 1 GRAM, Q.12H
     Route: 065
  42. TOCILIZUMAB. [Suspect]
     Active Substance: TOCILIZUMAB
     Indication: RHEUMATOID ARTHRITIS
     Dosage: UNK
     Route: 058
  43. XELJANZ [Suspect]
     Active Substance: TOFACITINIB CITRATE
     Dosage: 1 DOSAGE FORM
     Route: 065
  44. FOSAMAX [Suspect]
     Active Substance: ALENDRONATE SODIUM
     Indication: RHEUMATOID ARTHRITIS
     Dosage: UNK
     Route: 058
  45. PHTHALYLSULFATHIAZOLE [Suspect]
     Active Substance: PHTHALYLSULFATHIAZOLE
     Indication: RHEUMATOID ARTHRITIS
     Dosage: UNK
     Route: 058
  46. CALCIUM [Concomitant]
     Active Substance: CALCIUM
     Indication: PRODUCT USED FOR UNKNOWN INDICATION
     Dosage: UNK
     Route: 065
  47. MELOXICAM. [Concomitant]
     Active Substance: MELOXICAM
     Indication: PRODUCT USED FOR UNKNOWN INDICATION
     Dosage: UNK
     Route: 065
  48. PIROXICAM. [Concomitant]
     Active Substance: PIROXICAM
     Indication: PRODUCT USED FOR UNKNOWN INDICATION
     Dosage: UNK
     Route: 065
  49. LEFLUNOMIDE. [Suspect]
     Active Substance: LEFLUNOMIDE
     Dosage: 20 MILLIGRAM, QD
     Route: 048
  50. HYDROXYCHLOROQUINE [Suspect]
     Active Substance: HYDROXYCHLOROQUINE
     Indication: RHEUMATOID ARTHRITIS
     Dosage: 400 MILLIGRAM, QD
     Route: 066
  51. HYDROXYCHLOROQUINE [Suspect]
     Active Substance: HYDROXYCHLOROQUINE
     Dosage: 400 MILLIGRAM
     Route: 065
  52. METHOTREXATE. [Suspect]
     Active Substance: METHOTREXATE
     Dosage: 25 MILLIGRAM, Q.WK.
     Route: 048
  53. CETIRIZINE [Suspect]
     Active Substance: CETIRIZINE HYDROCHLORIDE
     Dosage: 25 MILLIGRAM
     Route: 065
  54. FOLIC ACID. [Suspect]
     Active Substance: FOLIC ACID
     Dosage: 1 MILLIGRAM
     Route: 065
  55. FOLIC ACID. [Suspect]
     Active Substance: FOLIC ACID
     Dosage: UNK
     Route: 065
  56. FOLIC ACID. [Suspect]
     Active Substance: FOLIC ACID
     Dosage: 500 MILLIGRAM
     Route: 048
  57. CIMZIA [Suspect]
     Active Substance: CERTOLIZUMAB PEGOL
     Indication: PSORIATIC ARTHROPATHY
     Dosage: UNK
     Route: 065
  58. CIMZIA [Suspect]
     Active Substance: CERTOLIZUMAB PEGOL
     Indication: PRODUCT USED FOR UNKNOWN INDICATION
  59. CORTISONE ACETATE. [Suspect]
     Active Substance: CORTISONE ACETATE
     Dosage: UNK
     Route: 065
  60. CORTISONE ACETATE. [Suspect]
     Active Substance: CORTISONE ACETATE
     Indication: RHEUMATOID ARTHRITIS
     Dosage: 25 MILLIGRAM
     Route: 061
  61. DESOXYMETHASONE [Suspect]
     Active Substance: DESOXIMETASONE
     Indication: RHEUMATOID ARTHRITIS
     Dosage: 25 MILLIGRAM, Q.WK.
     Route: 048
  62. DESOXYMETHASONE [Suspect]
     Active Substance: DESOXIMETASONE
     Dosage: UNK
     Route: 003
  63. FOSAMAX [Suspect]
     Active Substance: ALENDRONATE SODIUM
     Indication: RHEUMATOID ARTHRITIS
     Dosage: UNK
     Route: 048
  64. SIMPONI [Suspect]
     Active Substance: GOLIMUMAB
     Indication: RHEUMATOID ARTHRITIS
     Dosage: 50 MILLIGRAM, Q.M.T.
     Route: 058
  65. SIMPONI [Suspect]
     Active Substance: GOLIMUMAB
     Dosage: UNK
     Route: 042
  66. STELARA [Suspect]
     Active Substance: USTEKINUMAB
     Indication: PRODUCT USED FOR UNKNOWN INDICATION
     Dosage: 45 MILLIGRAM
     Route: 058
  67. STELARA [Suspect]
     Active Substance: USTEKINUMAB
     Indication: RHEUMATOID ARTHRITIS
     Dosage: UNK
     Route: 042
  68. SULFASALAZINE. [Suspect]
     Active Substance: SULFASALAZINE
     Dosage: 1 GRAM, DURATION 365 (UNSPECIFIED UNIT)
     Route: 065
  69. SULFASALAZINE. [Suspect]
     Active Substance: SULFASALAZINE
     Dosage: 1 MILLIGRAM, Q.12H
  70. SULFASALAZINE. [Suspect]
     Active Substance: SULFASALAZINE
     Dosage: 2 GRAM, QD, 365 (NO UNITS)
     Route: 048
  71. XELJANZ [Suspect]
     Active Substance: TOFACITINIB CITRATE
     Indication: RHEUMATOID ARTHRITIS
     Dosage: 5 MILLIGRAM, BID
     Route: 065
  72. XELJANZ [Suspect]
     Active Substance: TOFACITINIB CITRATE
     Dosage: 5 MILLIGRAM, BID
     Route: 048
  73. CETIRIZINE HYDROCHLORIDE. [Suspect]
     Active Substance: CETIRIZINE HYDROCHLORIDE
     Indication: RHEUMATOID ARTHRITIS
     Dosage: 25 MILLIGRAM
     Route: 065
  74. DESOXIMETASONE. [Suspect]
     Active Substance: DESOXIMETASONE
     Indication: PRODUCT USED FOR UNKNOWN INDICATION
     Dosage: UNK
     Route: 058
  75. ADALIMUMAB [Suspect]
     Active Substance: ADALIMUMAB
     Indication: RHEUMATOID ARTHRITIS
     Dosage: 40 MILLIGRAM
     Route: 058
  76. HYDROXYCHLOROQUINE SULFATE. [Suspect]
     Active Substance: HYDROXYCHLOROQUINE SULFATE
     Indication: RHEUMATOID ARTHRITIS
     Dosage: 40 MILLIGRAM, QD
     Route: 066
  77. APREMILAST [Suspect]
     Active Substance: APREMILAST
     Indication: PRODUCT USED FOR UNKNOWN INDICATION
     Dosage: 3 MILLIGRAM, BID
     Route: 065
  78. VITAMIN D3 [Concomitant]
     Active Substance: CHOLECALCIFEROL
     Indication: PRODUCT USED FOR UNKNOWN INDICATION
     Dosage: UNK
     Route: 065
  79. MAGNESIUM [Concomitant]
     Active Substance: MAGNESIUM
     Indication: PRODUCT USED FOR UNKNOWN INDICATION
     Dosage: UNK
     Route: 065
  80. PREDNISOLONE. [Concomitant]
     Active Substance: PREDNISOLONE
     Indication: PRODUCT USED FOR UNKNOWN INDICATION
     Dosage: UNK
     Route: 065
  81. AZATHIOPRINE. [Concomitant]
     Active Substance: AZATHIOPRINE
     Indication: PRODUCT USED FOR UNKNOWN INDICATION
     Dosage: UNK
     Route: 065
  82. CHOLECALCIFEROL [Concomitant]
     Active Substance: CHOLECALCIFEROL
     Indication: PRODUCT USED FOR UNKNOWN INDICATION
     Dosage: UNK
     Route: 065
  83. LEFLUNOMIDE. [Suspect]
     Active Substance: LEFLUNOMIDE
     Indication: PRODUCT USED FOR UNKNOWN INDICATION
     Dosage: UNK
     Route: 065
  84. APO?PREDNISONE [Suspect]
     Active Substance: PREDNISONE
     Indication: RHEUMATOID ARTHRITIS
     Dosage: 40 MILLIGRAM
     Route: 065
  85. APO?PREDNISONE [Suspect]
     Active Substance: PREDNISONE
     Indication: PRODUCT USED FOR UNKNOWN INDICATION
     Dosage: 5 MG
     Route: 065
  86. HYDROXYCHLOROQUINE [Suspect]
     Active Substance: HYDROXYCHLOROQUINE
     Dosage: 200 MILLIGRAM, QD
     Route: 065
  87. DICLOFENAC [Suspect]
     Active Substance: DICLOFENAC
     Indication: PRODUCT USED FOR UNKNOWN INDICATION
     Dosage: 50 MILLIGRAM, QD
     Route: 065
  88. FOLIC ACID. [Suspect]
     Active Substance: FOLIC ACID
     Dosage: 0.5 MILLIGRAM
     Route: 065
  89. ENBREL [Suspect]
     Active Substance: ETANERCEPT
     Dosage: UNK
     Route: 058
  90. ORENCIA [Suspect]
     Active Substance: ABATACEPT
     Dosage: UNK
     Route: 017
  91. PSEUDOEPHEDRINE HYDROCHLORIDE. [Suspect]
     Active Substance: PSEUDOEPHEDRINE HYDROCHLORIDE
     Dosage: 25 MILLIGRAM
     Route: 065
  92. SULFASALAZINE. [Suspect]
     Active Substance: SULFASALAZINE
     Indication: RHEUMATOID ARTHRITIS
     Dosage: 500 MILLIGRAM, QD
     Route: 048
  93. SULFASALAZINE. [Suspect]
     Active Substance: SULFASALAZINE
     Dosage: 500 MILLIGRAM, Q.12H
     Route: 065
  94. XELJANZ [Suspect]
     Active Substance: TOFACITINIB CITRATE
     Dosage: 10 MILLIGRAM, QD
     Route: 065
  95. CERTOLIZUMAB PEGOL [Suspect]
     Active Substance: CERTOLIZUMAB PEGOL
     Indication: PRODUCT USED FOR UNKNOWN INDICATION
     Dosage: UNK
     Route: 065
  96. DESOXIMETASONE. [Suspect]
     Active Substance: DESOXIMETASONE
     Indication: PRODUCT USED FOR UNKNOWN INDICATION
     Dosage: UNK
     Route: 003
  97. ALENDRONATE SODIUM;ALENDRONIC ACID [Suspect]
     Active Substance: ALENDRONIC ACID
     Indication: RHEUMATOID ARTHRITIS
     Dosage: UNK
     Route: 048
  98. COSENTYX [Suspect]
     Active Substance: SECUKINUMAB
     Indication: PSORIATIC ARTHROPATHY
     Dosage: UNK
     Route: 065
  99. HYDROCORTISONE ACETATE. [Suspect]
     Active Substance: HYDROCORTISONE ACETATE
     Indication: PRODUCT USED FOR UNKNOWN INDICATION
     Dosage: UNK
     Route: 061
  100. CETIRIZINE [Suspect]
     Active Substance: CETIRIZINE HYDROCHLORIDE
     Indication: PRODUCT USED FOR UNKNOWN INDICATION
  101. REACTINE [CETIRIZINE HYDROCHLORIDE] [Suspect]
     Active Substance: CETIRIZINE HYDROCHLORIDE
     Indication: PRODUCT USED FOR UNKNOWN INDICATION
     Dosage: UNK
     Route: 065
  102. HYDROCORTISONE ACETATE. [Suspect]
     Active Substance: HYDROCORTISONE ACETATE
     Indication: PRODUCT USED FOR UNKNOWN INDICATION
     Dosage: UNK
     Route: 003
  103. SALAZOPYRIN [Concomitant]
     Active Substance: SULFASALAZINE
     Dosage: 1 GRAM, BID
     Route: 048
  104. LEVOTHYROXINE SODIUM. [Concomitant]
     Active Substance: LEVOTHYROXINE SODIUM
     Indication: PRODUCT USED FOR UNKNOWN INDICATION
     Dosage: UNK
     Route: 065
  105. RISEDRONATE SODIUM. [Concomitant]
     Active Substance: RISEDRONATE SODIUM
     Indication: PRODUCT USED FOR UNKNOWN INDICATION
     Dosage: UNK
     Route: 065
  106. METHOTREXATE. [Suspect]
     Active Substance: METHOTREXATE
     Indication: PRODUCT USED FOR UNKNOWN INDICATION
     Dosage: 20 MILLIGRAM, QD
     Route: 048
  107. METHOTREXATE. [Suspect]
     Active Substance: METHOTREXATE
     Indication: PSORIATIC ARTHROPATHY
     Dosage: 20 MILLIGRAM, Q.WK.
     Route: 065
  108. METHOTREXATE. [Suspect]
     Active Substance: METHOTREXATE
     Dosage: 25 MILLIGRAM, Q.WK.
     Route: 048
  109. CETIRIZINE [Suspect]
     Active Substance: CETIRIZINE HYDROCHLORIDE
     Indication: OFF LABEL USE
     Dosage: UNK
     Route: 065
  110. DICLOFENAC [Suspect]
     Active Substance: DICLOFENAC
     Dosage: 50 MILLIGRAM
     Route: 065
  111. FOLIC ACID. [Suspect]
     Active Substance: FOLIC ACID
     Indication: PRODUCT USED FOR UNKNOWN INDICATION
     Dosage: 5 MILLIGRAM
     Route: 048
  112. CETIRIZINE HYDROCHLORIDE;PSEUDOEPHEDRINE HYDROCHLORIDE [Suspect]
     Active Substance: CETIRIZINE HYDROCHLORIDE\PSEUDOEPHEDRINE HYDROCHLORIDE
     Indication: OFF LABEL USE
     Dosage: 25 MILLIGRAM
     Route: 065
  113. DESOXYMETHASONE [Suspect]
     Active Substance: DESOXIMETASONE
     Dosage: UNK
     Route: 048
  114. FOSAMAX [Suspect]
     Active Substance: ALENDRONATE SODIUM
     Indication: PRODUCT USED FOR UNKNOWN INDICATION
     Dosage: UNK
     Route: 065
  115. KEVZARA [Suspect]
     Active Substance: SARILUMAB
     Indication: RHEUMATOID ARTHRITIS
     Dosage: UNK
     Route: 065
  116. METHOTREXATE. [Suspect]
     Active Substance: METHOTREXATE
     Dosage: 25 MG, Q.WK
     Route: 013
  117. PHTHALYLSULFATHIAZOLE [Suspect]
     Active Substance: PHTHALYLSULFATHIAZOLE
     Indication: RHEUMATOID ARTHRITIS
     Dosage: 500 MILLIGRAM
     Route: 048
  118. RITUXIMAB. [Suspect]
     Active Substance: RITUXIMAB
     Dosage: UNK
     Route: 043
  119. SULFASALAZINE. [Suspect]
     Active Substance: SULFASALAZINE
     Dosage: 1000 MILLIGRAM, QD
     Route: 048
  120. HYDROXYCHLOROQUINE SULFATE. [Suspect]
     Active Substance: HYDROXYCHLOROQUINE SULFATE
     Dosage: 400 MILLIGRAM, QD
     Route: 066
  121. FLUMETASONE PIVALATE [Suspect]
     Active Substance: FLUMETHASONE PIVALATE
     Indication: RHEUMATOID ARTHRITIS
     Dosage: UNK
     Route: 058
  122. USTEKINUMAB [Suspect]
     Active Substance: USTEKINUMAB
     Dosage: 45 MILLIGRAM
     Route: 042
  123. CETIRIZINE [Suspect]
     Active Substance: CETIRIZINE HYDROCHLORIDE
     Indication: RHEUMATOID ARTHRITIS
     Dosage: 25 MILLIGRAM
     Route: 065
  124. HYDROXYCHLOROQUINE [Suspect]
     Active Substance: HYDROXYCHLOROQUINE
     Indication: RHEUMATOID ARTHRITIS
     Dosage: UNK UNK, QD
     Route: 058
  125. ACETAMINOPHEN;CODEINE PHOSPHATE [Concomitant]
     Active Substance: ACETAMINOPHEN\CODEINE PHOSPHATE
     Indication: PRODUCT USED FOR UNKNOWN INDICATION
     Dosage: UNK
     Route: 065
  126. TOFACITINIB CITRATE [Concomitant]
     Active Substance: TOFACITINIB CITRATE
     Indication: PRODUCT USED FOR UNKNOWN INDICATION
     Dosage: 5 MILLIGRAM, Q.WK.
     Route: 048
  127. ERYTHROMYCIN. [Concomitant]
     Active Substance: ERYTHROMYCIN
     Indication: PRODUCT USED FOR UNKNOWN INDICATION
     Dosage: UNK
     Route: 065
  128. MORPHINE [Concomitant]
     Active Substance: MORPHINE
     Indication: RHEUMATOID ARTHRITIS
     Dosage: UNK
     Route: 042
  129. NAPROXEN. [Concomitant]
     Active Substance: NAPROXEN
     Indication: PRODUCT USED FOR UNKNOWN INDICATION
     Dosage: UNK
     Route: 065
  130. APO?PREDNISONE [Suspect]
     Active Substance: PREDNISONE
     Indication: CONDITION AGGRAVATED
     Dosage: UNK
     Route: 065
  131. APO?PREDNISONE [Suspect]
     Active Substance: PREDNISONE
     Dosage: 1 MG
     Route: 065
  132. PREDNISONE. [Suspect]
     Active Substance: PREDNISONE
     Indication: RHEUMATOID ARTHRITIS
     Dosage: 1 MILLIGRAM
     Route: 065
  133. CETIRIZINE [Suspect]
     Active Substance: CETIRIZINE HYDROCHLORIDE
     Dosage: 10 MILLIGRAM
     Route: 048
  134. DICLOFENAC [Suspect]
     Active Substance: DICLOFENAC
     Dosage: UNK
     Route: 065
  135. FOLIC ACID. [Suspect]
     Active Substance: FOLIC ACID
     Dosage: 15 MILLIGRAM
     Route: 065
  136. FOLIC ACID. [Suspect]
     Active Substance: FOLIC ACID
     Dosage: 5 UNK
     Route: 065
  137. ACTEMRA [Suspect]
     Active Substance: TOCILIZUMAB
     Indication: RHEUMATOID ARTHRITIS
     Dosage: UNK
     Route: 042
  138. HUMIRA [Suspect]
     Active Substance: ADALIMUMAB
     Indication: RHEUMATOID ARTHRITIS
     Dosage: 40 MILLIGRAM
     Route: 058
  139. HUMIRA [Suspect]
     Active Substance: ADALIMUMAB
     Dosage: 40 UNK
     Route: 057
  140. ORENCIA [Suspect]
     Active Substance: ABATACEPT
     Indication: RHEUMATOID ARTHRITIS
     Dosage: UNK
     Route: 058
  141. PSEUDOEPHEDRINE HYDROCHLORIDE. [Suspect]
     Active Substance: PSEUDOEPHEDRINE HYDROCHLORIDE
     Indication: RHEUMATOID ARTHRITIS
     Dosage: 25 MILLIGRAM
     Route: 048
  142. REMICADE [Suspect]
     Active Substance: INFLIXIMAB
     Indication: RHEUMATOID ARTHRITIS
     Dosage: UNK
     Route: 058
  143. SIMPONI [Suspect]
     Active Substance: GOLIMUMAB
     Indication: PSORIATIC ARTHROPATHY
     Dosage: UNK
     Route: 058
  144. XELJANZ [Suspect]
     Active Substance: TOFACITINIB CITRATE
     Indication: PRODUCT USED FOR UNKNOWN INDICATION
     Dosage: 5 MILLIGRAM, Q.WK.
     Route: 048
  145. XELJANZ [Suspect]
     Active Substance: TOFACITINIB CITRATE
     Dosage: 5 UNK
     Route: 065
  146. ADALIMUMAB [Suspect]
     Active Substance: ADALIMUMAB
     Dosage: 40 MILLIGRAM
     Route: 065
  147. HYDROCORTISONE ACETATE. [Suspect]
     Active Substance: HYDROCORTISONE ACETATE
     Indication: RHEUMATOID ARTHRITIS
  148. LYRICA [Suspect]
     Active Substance: PREGABALIN
     Indication: PRODUCT USED FOR UNKNOWN INDICATION
     Dosage: UNK
     Route: 065
  149. PLAQUENIL [Suspect]
     Active Substance: HYDROXYCHLOROQUINE SULFATE
     Indication: RHEUMATOID ARTHRITIS
     Dosage: 400 MILLIGRAM, QD
     Route: 048
  150. TOPICORT [Suspect]
     Active Substance: DESOXIMETASONE
     Indication: RHEUMATOID ARTHRITIS
     Dosage: UNK
     Route: 048
  151. TOPICORT [Suspect]
     Active Substance: DESOXIMETASONE
     Indication: RHEUMATOID ARTHRITIS
     Dosage: UNK
     Route: 058
  152. FOSAMAX [Suspect]
     Active Substance: ALENDRONATE SODIUM
     Indication: PRODUCT USED FOR UNKNOWN INDICATION
  153. LISINOPRIL DIHYDRATE [Concomitant]
     Active Substance: LISINOPRIL
     Indication: PRODUCT USED FOR UNKNOWN INDICATION
     Dosage: UNK
     Route: 065
  154. PANTOPRAZOLE [Concomitant]
     Active Substance: PANTOPRAZOLE
     Indication: PRODUCT USED FOR UNKNOWN INDICATION
     Dosage: UNK
     Route: 065
  155. HYDROXYCHLOROQUINE [Suspect]
     Active Substance: HYDROXYCHLOROQUINE
     Dosage: 40 MILLIGRAM, QD
     Route: 065
  156. METHOTREXATE. [Suspect]
     Active Substance: METHOTREXATE
     Indication: RHEUMATOID ARTHRITIS
     Dosage: 20 MILLIGRAM, QD
     Route: 048
  157. METHOTREXATE. [Suspect]
     Active Substance: METHOTREXATE
     Dosage: 15 MILLIGRAM, QD
     Route: 048
  158. METHOTREXATE. [Suspect]
     Active Substance: METHOTREXATE
     Dosage: 25 MILLIGRAM, Q.WK.
     Route: 013
  159. MYCOPHENOLATE MOFETIL. [Suspect]
     Active Substance: MYCOPHENOLATE MOFETIL
     Indication: PRODUCT USED FOR UNKNOWN INDICATION
     Dosage: UNK
     Route: 065
  160. ACETAMINOPHEN. [Suspect]
     Active Substance: ACETAMINOPHEN
     Indication: RHEUMATOID ARTHRITIS
     Dosage: UNK
     Route: 065
  161. ACTEMRA [Suspect]
     Active Substance: TOCILIZUMAB
     Indication: PRODUCT USED FOR UNKNOWN INDICATION
     Dosage: UNK
     Route: 065
  162. CIMZIA [Suspect]
     Active Substance: CERTOLIZUMAB PEGOL
     Indication: RHEUMATOID ARTHRITIS
     Dosage: 400 MILLIGRAM
     Route: 058
  163. DESOXYMETHASONE [Suspect]
     Active Substance: DESOXIMETASONE
     Indication: RHEUMATOID ARTHRITIS
     Dosage: UNK
     Route: 061
  164. ENBREL [Suspect]
     Active Substance: ETANERCEPT
     Indication: PSORIATIC ARTHROPATHY
     Dosage: 20 MILLIGRAM
     Route: 058
  165. METHOTREXATE. [Suspect]
     Active Substance: METHOTREXATE
     Dosage: UNK
     Route: 058
  166. SULFASALAZINE. [Suspect]
     Active Substance: SULFASALAZINE
     Indication: PRODUCT USED FOR UNKNOWN INDICATION
     Dosage: 1000 MILLIGRAM, BID
     Route: 048
  167. XELJANZ [Suspect]
     Active Substance: TOFACITINIB CITRATE
     Dosage: 5 MILLIGRAM, QD
     Route: 065
  168. XELJANZ [Suspect]
     Active Substance: TOFACITINIB CITRATE
     Dosage: 5 MILLIGRAM, Q.12H
     Route: 065
  169. CETIRIZINE HYDROCHLORIDE;PHENYLEPHRINE HYDROCHLORIDE [Suspect]
     Active Substance: CETIRIZINE HYDROCHLORIDE\PHENYLEPHRINE HYDROCHLORIDE
     Indication: RHEUMATOID ARTHRITIS
     Dosage: 10 MILLIGRAM
     Route: 065
  170. FOLIC ACID. [Suspect]
     Active Substance: FOLIC ACID
     Indication: RHEUMATOID ARTHRITIS
     Dosage: 1 MILLIGRAM
     Route: 058
  171. FOLIC ACID. [Suspect]
     Active Substance: FOLIC ACID
     Indication: PRODUCT USED FOR UNKNOWN INDICATION
  172. TOFACITINIB CITRATE [Suspect]
     Active Substance: TOFACITINIB CITRATE
     Dosage: 5 MILLIGRAM, Q.WK.
     Route: 048
  173. ALENDRONATE SODIUM;ALENDRONIC ACID [Suspect]
     Active Substance: ALENDRONIC ACID
     Dosage: UNK
     Route: 065
  174. INFLIXIMAB [Suspect]
     Active Substance: INFLIXIMAB
     Dosage: UNK
     Route: 042
  175. PLAQUENIL [Suspect]
     Active Substance: HYDROXYCHLOROQUINE SULFATE
     Indication: PRODUCT USED FOR UNKNOWN INDICATION
  176. TOPICORT [Suspect]
     Active Substance: DESOXIMETASONE
     Dosage: UNK
     Route: 003
  177. PSEUDOEPHEDRINE. [Suspect]
     Active Substance: PSEUDOEPHEDRINE HYDROCHLORIDE
     Indication: RHEUMATOID ARTHRITIS
     Dosage: UNK
     Route: 065
  178. HYDROCORTISONE ACETATE. [Suspect]
     Active Substance: HYDROCORTISONE ACETATE
     Indication: RHEUMATOID ARTHRITIS
     Dosage: UNK
     Route: 058
  179. RAMIPRIL. [Concomitant]
     Active Substance: RAMIPRIL
     Indication: PRODUCT USED FOR UNKNOWN INDICATION
     Dosage: UNK
     Route: 065
  180. HYDROXYCHLOROQUINE [Suspect]
     Active Substance: HYDROXYCHLOROQUINE
     Dosage: UNK
     Route: 048
  181. NAPROXEN SODIUM. [Suspect]
     Active Substance: NAPROXEN SODIUM
     Indication: RHEUMATOID ARTHRITIS
     Dosage: 500 MILLIGRAM, BID
     Route: 065
  182. ARAVA [Suspect]
     Active Substance: LEFLUNOMIDE
     Indication: RHEUMATOID ARTHRITIS
     Dosage: 20 MILLIGRAM
     Route: 048
  183. ERELZI [Suspect]
     Active Substance: ETANERCEPT-SZZS
     Indication: RHEUMATOID ARTHRITIS
     Dosage: 50 MILLIGRAM, Q.WK.
     Route: 058
  184. HUMIRA [Suspect]
     Active Substance: ADALIMUMAB
     Indication: PSORIATIC ARTHROPATHY
     Dosage: 4 MILLIGRAM
     Route: 058
  185. ORENCIA [Suspect]
     Active Substance: ABATACEPT
     Dosage: UNK
     Route: 042
  186. OTEZLA [Suspect]
     Active Substance: APREMILAST
     Dosage: UNK
     Route: 048
  187. PHTHALYLSULFATHIAZOLE [Suspect]
     Active Substance: PHTHALYLSULFATHIAZOLE
     Dosage: 1000 MILLIGRAM, Q.12H
     Route: 048
  188. CERTOLIZUMAB PEGOL [Suspect]
     Active Substance: CERTOLIZUMAB PEGOL
     Indication: RHEUMATOID ARTHRITIS
     Dosage: UNK
     Route: 058
  189. DESOXIMETASONE. [Suspect]
     Active Substance: DESOXIMETASONE
     Dosage: UNK
     Route: 048
  190. INFLIXIMAB [Suspect]
     Active Substance: INFLIXIMAB
     Indication: RHEUMATOID ARTHRITIS
     Dosage: 400 MILLIGRAM
     Route: 065
  191. USTEKINUMAB [Suspect]
     Active Substance: USTEKINUMAB
     Indication: PRODUCT USED FOR UNKNOWN INDICATION
     Dosage: 45 MILLIGRAM
     Route: 058
  192. IBUPROFEN. [Concomitant]
     Active Substance: IBUPROFEN
     Indication: PRODUCT USED FOR UNKNOWN INDICATION
     Dosage: UNK
     Route: 065
  193. ACETAMINOPHEN. [Concomitant]
     Active Substance: ACETAMINOPHEN
     Indication: RHEUMATOID ARTHRITIS
     Dosage: UNK
     Route: 065
  194. SALAZOPYRIN [Concomitant]
     Active Substance: SULFASALAZINE
     Indication: PRODUCT USED FOR UNKNOWN INDICATION
     Dosage: 1 GRAM, QD
     Route: 048
  195. PRINIVIL [Concomitant]
     Active Substance: LISINOPRIL
     Indication: PRODUCT USED FOR UNKNOWN INDICATION
     Dosage: UNK
     Route: 065

REACTIONS (92)
  - General physical health deterioration [Not Recovered/Not Resolved]
  - Contraindicated product administered [Not Recovered/Not Resolved]
  - Off label use [Not Recovered/Not Resolved]
  - Injury [Not Recovered/Not Resolved]
  - Hip arthroplasty [Not Recovered/Not Resolved]
  - Abdominal discomfort [Not Recovered/Not Resolved]
  - Adjustment disorder with depressed mood [Not Recovered/Not Resolved]
  - Drug hypersensitivity [Not Recovered/Not Resolved]
  - Joint range of motion decreased [Not Recovered/Not Resolved]
  - Liver function test increased [Not Recovered/Not Resolved]
  - Memory impairment [Not Recovered/Not Resolved]
  - Peripheral swelling [Not Recovered/Not Resolved]
  - Seronegative arthritis [Not Recovered/Not Resolved]
  - Dizziness [Not Recovered/Not Resolved]
  - Rash [Not Recovered/Not Resolved]
  - Condition aggravated [Not Recovered/Not Resolved]
  - Blood cholesterol increased [Not Recovered/Not Resolved]
  - Duodenal ulcer perforation [Not Recovered/Not Resolved]
  - Product use in unapproved indication [Not Recovered/Not Resolved]
  - Infection [Not Recovered/Not Resolved]
  - Muscular weakness [Not Recovered/Not Resolved]
  - Sleep disorder [Not Recovered/Not Resolved]
  - Delirium [Not Recovered/Not Resolved]
  - Product use issue [Not Recovered/Not Resolved]
  - Mobility decreased [Not Recovered/Not Resolved]
  - Systemic lupus erythematosus [Not Recovered/Not Resolved]
  - Fibromyalgia [Not Recovered/Not Resolved]
  - Maternal exposure during pregnancy [Not Recovered/Not Resolved]
  - Abdominal pain upper [Not Recovered/Not Resolved]
  - Headache [Not Recovered/Not Resolved]
  - Amnesia [Not Recovered/Not Resolved]
  - Depression [Not Recovered/Not Resolved]
  - Dislocation of vertebra [Not Recovered/Not Resolved]
  - Grip strength decreased [Not Recovered/Not Resolved]
  - Disability [Not Recovered/Not Resolved]
  - Malaise [Not Recovered/Not Resolved]
  - Diarrhoea [Not Recovered/Not Resolved]
  - Therapeutic product effect decreased [Not Recovered/Not Resolved]
  - Exposure during pregnancy [Not Recovered/Not Resolved]
  - Swollen joint count increased [Not Recovered/Not Resolved]
  - Rheumatic fever [Not Recovered/Not Resolved]
  - Glossodynia [Not Recovered/Not Resolved]
  - Arthropathy [Not Recovered/Not Resolved]
  - Pericarditis [Not Recovered/Not Resolved]
  - Hepatic enzyme increased [Not Recovered/Not Resolved]
  - Knee arthroplasty [Not Recovered/Not Resolved]
  - Adverse drug reaction [Not Recovered/Not Resolved]
  - Discomfort [Not Recovered/Not Resolved]
  - Drug intolerance [Not Recovered/Not Resolved]
  - Joint swelling [Not Recovered/Not Resolved]
  - Synovitis [Not Recovered/Not Resolved]
  - Pain [Not Recovered/Not Resolved]
  - Hypoaesthesia [Not Recovered/Not Resolved]
  - Adverse event [Not Recovered/Not Resolved]
  - Intentional product use issue [Not Recovered/Not Resolved]
  - Hypertension [Not Recovered/Not Resolved]
  - Drug tolerance decreased [Not Recovered/Not Resolved]
  - Treatment noncompliance [Not Recovered/Not Resolved]
  - Fatigue [Not Recovered/Not Resolved]
  - Hand deformity [Not Recovered/Not Resolved]
  - Rheumatoid factor positive [Not Recovered/Not Resolved]
  - Infusion related reaction [Not Recovered/Not Resolved]
  - Oedema [Not Recovered/Not Resolved]
  - Prescribed overdose [Not Recovered/Not Resolved]
  - Decreased appetite [Not Recovered/Not Resolved]
  - Anti-cyclic citrullinated peptide antibody positive [Not Recovered/Not Resolved]
  - Gait disturbance [Not Recovered/Not Resolved]
  - Weight decreased [Not Recovered/Not Resolved]
  - Nausea [Not Recovered/Not Resolved]
  - Drug ineffective [Not Recovered/Not Resolved]
  - Treatment failure [Not Recovered/Not Resolved]
  - Rheumatoid arthritis [Not Recovered/Not Resolved]
  - Wound [Not Recovered/Not Resolved]
  - Musculoskeletal stiffness [Not Recovered/Not Resolved]
  - Pemphigus [Not Recovered/Not Resolved]
  - Blister [Not Recovered/Not Resolved]
  - Hypersensitivity [Not Recovered/Not Resolved]
  - Breast cancer stage III [Not Recovered/Not Resolved]
  - Spondylitis [Not Recovered/Not Resolved]
  - Walking aid user [Not Recovered/Not Resolved]
  - Pregnancy [Not Recovered/Not Resolved]
  - Swelling [Not Recovered/Not Resolved]
  - Arthralgia [Not Recovered/Not Resolved]
  - Type 2 diabetes mellitus [Not Recovered/Not Resolved]
  - Wheezing [Not Recovered/Not Resolved]
  - Abdominal pain [Not Recovered/Not Resolved]
  - Helicobacter infection [Not Recovered/Not Resolved]
  - Pain in extremity [Not Recovered/Not Resolved]
  - Spinal fusion surgery [Not Recovered/Not Resolved]
  - Wound infection [Not Recovered/Not Resolved]
  - Alopecia [Not Recovered/Not Resolved]
  - Vomiting [Not Recovered/Not Resolved]
